FAERS Safety Report 10177868 (Version 3)
Quarter: 2014Q2

REPORT INFORMATION
  Report Type: Report from Study
  Country: CA (occurrence: CA)
  Receive Date: 20140516
  Receipt Date: 20140520
  Transmission Date: 20141212
  Serious: Yes (Other)
  Sender: FDA-Public Use
  Company Number: CA-ABBVIE-14P-028-1232605-00

PATIENT
  Sex: Female
  Weight: 49.94 kg

DRUGS (1)
  1. HUMIRA [Suspect]
     Indication: CROHN^S DISEASE
     Route: 058
     Dates: start: 20130505, end: 20140207

REACTIONS (11)
  - Intestinal stenosis [Unknown]
  - Procedural complication [Unknown]
  - Post procedural infection [Recovered/Resolved]
  - Procedural complication [Recovered/Resolved]
  - Abscess [Not Recovered/Not Resolved]
  - Incisional drainage [Not Recovered/Not Resolved]
  - Wound [Unknown]
  - Epistaxis [Recovered/Resolved]
  - Headache [Recovered/Resolved]
  - Dizziness [Recovered/Resolved]
  - Suture rupture [Not Recovered/Not Resolved]
